FAERS Safety Report 16251501 (Version 1)
Quarter: 2019Q2

REPORT INFORMATION
  Report Type: Spontaneous
  Country: GB (occurrence: GB)
  Receive Date: 20190429
  Receipt Date: 20190429
  Transmission Date: 20190711
  Serious: Yes (Other)
  Sender: FDA-Public Use
  Company Number: GB-PFIZER INC-2019177594

PATIENT
  Age: 64 Year
  Sex: Male
  Weight: 98 kg

DRUGS (6)
  1. METFORMIN [Concomitant]
     Active Substance: METFORMIN HYDROCHLORIDE
     Dosage: 2 DF, 1X/DAY
     Route: 065
     Dates: start: 20190228
  2. LANSOPRAZOLE. [Concomitant]
     Active Substance: LANSOPRAZOLE
     Dosage: 1 DF, 1X/DAY
     Route: 065
     Dates: start: 20190205
  3. AMLODIPINE [Concomitant]
     Active Substance: AMLODIPINE BESYLATE
     Dosage: 1 DF, 1X/DAY
     Route: 065
     Dates: start: 20181120, end: 20190228
  4. RAMIPRIL. [Suspect]
     Active Substance: RAMIPRIL
     Dosage: 2.5 MG, QD
     Route: 065
     Dates: start: 20190228
  5. INDOMETACIN [Concomitant]
     Active Substance: INDOMETHACIN
     Dosage: 3 DF, 1X/DAY
     Route: 065
     Dates: start: 20190117, end: 20190126
  6. HYDROCORTISONE. [Concomitant]
     Active Substance: HYDROCORTISONE
     Dosage: 2 DF, 1X/DAY
     Route: 065
     Dates: start: 20190228, end: 20190315

REACTIONS (1)
  - Swelling [Recovered/Resolved]

NARRATIVE: CASE EVENT DATE: 20190326
